FAERS Safety Report 10945143 (Version 1)
Quarter: 2015Q1

REPORT INFORMATION
  Report Type: Spontaneous
  Country: US (occurrence: None)
  Receive Date: 20150212
  Receipt Date: 20150212
  Transmission Date: 20150721
  Serious: Yes (Other)
  Sender: FDA-Public Use
  Company Number: TPA2011A01110

PATIENT
  Age: 71 Year
  Sex: Male
  Weight: 106.6 kg

DRUGS (11)
  1. FLOMAX [Concomitant]
     Active Substance: TAMSULOSIN HYDROCHLORIDE
  2. COUMADIN [Concomitant]
     Active Substance: WARFARIN SODIUM
  3. UNKNOWN MEDICATION FOR HIGH BLOOD PRESSURE (ANTIHYPERTENSIVES) [Concomitant]
  4. ULORIC [Suspect]
     Active Substance: FEBUXOSTAT
     Indication: GOUT
     Route: 048
     Dates: start: 201101
  5. INSULIN [Concomitant]
     Active Substance: INSULIN NOS
  6. VITAMIN D (ERGOCALCIFEROL) [Concomitant]
     Active Substance: ERGOCALCIFEROL
  7. GLEEVEC (IMATINIB MESILATE) [Concomitant]
  8. IRON [Concomitant]
     Active Substance: IRON
  9. LASIX [Concomitant]
     Active Substance: FUROSEMIDE
  10. COLCHICINE. [Concomitant]
     Active Substance: COLCHICINE
  11. UNKNOWN MEDICATION FOR HIGH CHOLESTEROL (CHOLESTEROL) [Concomitant]

REACTIONS (4)
  - Lethargy [None]
  - Anaemia [None]
  - Weight increased [None]
  - Abdominal distension [None]

NARRATIVE: CASE EVENT DATE: 2011
